FAERS Safety Report 18187032 (Version 2)
Quarter: 2022Q4

REPORT INFORMATION
  Report Type: Spontaneous
  Country: US (occurrence: US)
  Receive Date: 20200824
  Receipt Date: 20221012
  Transmission Date: 20230112
  Serious: No
  Sender: FDA-Public Use
  Company Number: US-CELLTRION INC.-2020US019000

PATIENT

DRUGS (2)
  1. INFLECTRA [Suspect]
     Active Substance: INFLIXIMAB-DYYB
     Indication: Product used for unknown indication
     Dosage: 400 MG EVERY 2, THEN EVERY 4 AND EVERY 8 WEEKS
     Route: 065
  2. INFLECTRA [Suspect]
     Active Substance: INFLIXIMAB-DYYB
     Dosage: INFUSION DATES OF 3/12, 3/27 AND 4/27 THEN EVERY 8 WEEKS

REACTIONS (3)
  - Illness [Unknown]
  - Product use issue [Unknown]
  - Off label use [Unknown]
